FAERS Safety Report 6576880-0 (Version None)
Quarter: 2010Q1

REPORT INFORMATION
  Report Type: 
  Country: None (occurrence: None)
  Receive Date: 20100210
  Receipt Date: 20100208
  Transmission Date: 20100710
  Serious: Yes (Death)
  Sender: FDA-Public Use
  Company Number: A0843581A

PATIENT
  Sex: Female

DRUGS (1)
  1. PROMACTA [Suspect]

REACTIONS (1)
  - DEATH [None]
